FAERS Safety Report 6072246-0 (Version None)
Quarter: 2009Q1

REPORT INFORMATION
  Report Type: 
  Country: None (occurrence: None)
  Receive Date: 20090206
  Receipt Date: 20090206
  Transmission Date: 20090719
  Serious: Yes (Life-Threatening)
  Sender: FDA-Public Use
  Company Number: None

PATIENT
  Age: 23 Year
  Sex: Female
  Weight: 63.5036 kg

DRUGS (1)
  1. ZYPREXA [Suspect]
     Indication: ANGER
     Dosage: 5MG-15MG 2 TIMES A DAY PO
     Route: 048
     Dates: start: 20070527, end: 20070611

REACTIONS (16)
  - ABASIA [None]
  - CARDIAC DISORDER [None]
  - EYE DISORDER [None]
  - FEELING JITTERY [None]
  - GAIT DISTURBANCE [None]
  - HYPERTENSION [None]
  - JOINT STIFFNESS [None]
  - LOSS OF CONSCIOUSNESS [None]
  - MOBILITY DECREASED [None]
  - MUSCULOSKELETAL STIFFNESS [None]
  - PALPITATIONS [None]
  - SEDATION [None]
  - SWELLING FACE [None]
  - SYNCOPE [None]
  - TREMOR [None]
  - VOMITING [None]
